FAERS Safety Report 8934603 (Version 1)
Quarter: 2012Q4

REPORT INFORMATION
  Report Type: 
  Country: US (occurrence: US)
  Receive Date: 20121129
  Receipt Date: 20121129
  Transmission Date: 20130627
  Serious: Yes (Hospitalization)
  Sender: FDA-Public Use
  Company Number: US-JNJFOC-20121112716

PATIENT

DRUGS (2)
  1. EVICEL [Suspect]
     Indication: HAEMOSTASIS
     Route: 061
     Dates: start: 20121115, end: 20121115
  2. LOCAL HAEMOSTATICS [Concomitant]
     Indication: HAEMOSTASIS
     Route: 061
     Dates: start: 20121115, end: 20121115

REACTIONS (3)
  - Haemorrhage [Unknown]
  - Haematoma [Unknown]
  - Drug ineffective [Unknown]
